FAERS Safety Report 4397937-9 (Version None)
Quarter: 2004Q3

REPORT INFORMATION
  Report Type: 
  Country: None (occurrence: None)
  Receive Date: 20040713
  Receipt Date: 20040628
  Transmission Date: 20050211
  Serious: Yes (Other)
  Sender: FDA-Public Use
  Company Number: 199241

PATIENT
  Age: 54 Year
  Sex: Female
  Weight: 90.7194 kg

DRUGS (16)
  1. AVONEX [Suspect]
     Indication: MULTIPLE SCLEROSIS
     Dosage: 30 MCG QW IM
     Route: 030
     Dates: start: 20040521
  2. ACCUPRIL [Concomitant]
  3. XANAX [Concomitant]
  4. LIPITOR [Concomitant]
  5. ISOPTIN TAB [Concomitant]
  6. GLUCOPHAGE ^UNS^ [Concomitant]
  7. LORTAB [Concomitant]
  8. PERCOCET [Concomitant]
  9. ZANAFLEX [Concomitant]
  10. PREVACID [Concomitant]
  11. URINARY TRACT MEDICATION [Concomitant]
  12. LIDOCAINE [Concomitant]
  13. CLARITIN [Concomitant]
  14. WELCHOL [Concomitant]
  15. HIPREX [Concomitant]
  16. ACCUPRO [Concomitant]

REACTIONS (12)
  - CHILLS [None]
  - DIFFICULTY IN WALKING [None]
  - HEADACHE [None]
  - HYPOAESTHESIA [None]
  - INFLUENZA LIKE ILLNESS [None]
  - INJECTION SITE STINGING [None]
  - MUSCLE SPASMS [None]
  - MUSCULAR WEAKNESS [None]
  - MYALGIA [None]
  - ORAL MUCOSAL BLISTERING [None]
  - PYREXIA [None]
  - VOMITING [None]
